FAERS Safety Report 18916331 (Version 2)
Quarter: 2021Q1

REPORT INFORMATION
  Report Type: Spontaneous
  Country: BE (occurrence: BE)
  Receive Date: 20210219
  Receipt Date: 20210301
  Transmission Date: 20210420
  Serious: Yes (Life-Threatening, Other)
  Sender: FDA-Public Use
  Company Number: BE-PFIZER INC-2021151139

PATIENT
  Age: 55 Year
  Sex: Male
  Weight: 110 kg

DRUGS (8)
  1. PARACETAMOL [Concomitant]
     Active Substance: ACETAMINOPHEN
     Dosage: 3DF, DAILY
  2. PENTASA [Concomitant]
     Active Substance: MESALAMINE
     Indication: COLITIS ULCERATIVE
     Dosage: 1DF, DAILY
  3. CLIPPER [Concomitant]
     Active Substance: BECLOMETHASONE DIPROPIONATE
     Dosage: 2DF, DAILY
  4. MEDROL [Concomitant]
     Active Substance: METHYLPREDNISOLONE
     Dosage: RECENT COURSE OF TREATMENT: TAPPED FROM 32 MG TO STOP, STOP NOW FOUR WEEKS AGO
  5. BUDENOFALK [Concomitant]
     Active Substance: BUDESONIDE
     Dosage: 6MG, DAILY
  6. XELJANZ [Suspect]
     Active Substance: TOFACITINIB CITRATE
     Indication: COLITIS ULCERATIVE
     Dosage: 4 DF, DAILY
     Route: 048
     Dates: start: 20210112, end: 20210119
  7. INOTYOL [ICHTHAMMOL;SODIUM BORATE] [Concomitant]
     Dosage: 1DF, DAILY
  8. STEOVIT FORTE [Concomitant]
     Dosage: 1DF, DAILY (1000 MG/800 U.I.)

REACTIONS (2)
  - Pneumonitis chemical [Recovering/Resolving]
  - Hypersensitivity pneumonitis [Recovering/Resolving]

NARRATIVE: CASE EVENT DATE: 20210121
